FAERS Safety Report 25176003 (Version 1)
Quarter: 2025Q2

REPORT INFORMATION
  Report Type: Spontaneous
  Country: CN (occurrence: CN)
  Receive Date: 20250409
  Receipt Date: 20250409
  Transmission Date: 20250717
  Serious: Yes (Hospitalization)
  Sender: NOVO NORDISK
  Company Number: CN-NOVOPROD-1401470

PATIENT
  Age: 67 Year
  Sex: Male
  Weight: 87 kg

DRUGS (1)
  1. TRESIBA [Suspect]
     Active Substance: INSULIN DEGLUDEC
     Indication: Type 2 diabetes mellitus
     Dosage: 50 IU, QD(30U IN THE FORENOON AND 20U IN THE AFTERNOON)
     Dates: start: 2023, end: 20250326

REACTIONS (1)
  - Visual impairment [Unknown]
